FAERS Safety Report 5769331-7 (Version None)
Quarter: 2008Q2

REPORT INFORMATION
  Report Type: 
  Country: None (occurrence: None)
  Receive Date: 20080610
  Receipt Date: 20080602
  Transmission Date: 20081010
  Serious: Yes (Disabling, Other)
  Sender: FDA-Public Use
  Company Number: 163-21880-08042004

PATIENT
  Age: 75 Year
  Sex: Female

DRUGS (6)
  1. REVLIMID [Suspect]
     Indication: CHRONIC LYMPHOCYTIC LEUKAEMIA
     Dosage: 10 MG, DAILY X 21 DAYS, ORAL
     Route: 048
     Dates: start: 20080416, end: 20080418
  2. NEXIUM [Concomitant]
  3. ACTOS [Concomitant]
  4. INSULIN (INSULIN) [Concomitant]
  5. TOPROL-XL [Concomitant]
  6. VERAPAMIL [Concomitant]

REACTIONS (16)
  - ASTHENIA [None]
  - HEADACHE [None]
  - HYPOAESTHESIA ORAL [None]
  - LYMPH NODE PAIN [None]
  - LYMPHADENOPATHY [None]
  - NAUSEA [None]
  - ORAL INTAKE REDUCED [None]
  - ORAL PAIN [None]
  - PAIN IN JAW [None]
  - PLATELET COUNT DECREASED [None]
  - POOR QUALITY SLEEP [None]
  - PYREXIA [None]
  - SPLENOMEGALY [None]
  - TOOTHACHE [None]
  - TUMOUR FLARE [None]
  - WHITE BLOOD CELL COUNT DECREASED [None]
